FAERS Safety Report 7117283-X (Version None)
Quarter: 2010Q4

REPORT INFORMATION
  Report Type: 
  Country: None (occurrence: None)
  Receive Date: 20101122
  Receipt Date: 20101117
  Transmission Date: 20110411
  Serious: Yes (Other)
  Sender: FDA-Public Use
  Company Number: JP-PFIZER INC-2010149969

PATIENT
  Age: 45 Year
  Sex: Male

DRUGS (2)
  1. SOLANAX [Suspect]
     Dosage: UNK
  2. LUDIOMIL [Concomitant]
     Dosage: UNK
     Route: 048

REACTIONS (1)
  - BRADYCARDIA [None]
